FAERS Safety Report 5262645-9 (Version None)
Quarter: 2007Q1

REPORT INFORMATION
  Report Type: 
  Country: None (occurrence: None)
  Receive Date: 20070308
  Receipt Date: 20070221
  Transmission Date: 20070707
  Serious: Yes (Hospitalization)
  Sender: FDA-Public Use
  Company Number: 237575

PATIENT
  Age: 68 Year
  Sex: Female
  Weight: 82 kg

DRUGS (5)
  1. HERCEPTIN [Suspect]
     Indication: BREAST CANCER
     Dosage: 400 MG, QD, INTRAVENOUS
     Route: 042
     Dates: start: 20060828
  2. FEMARA [Concomitant]
  3. ATACAND HCT [Concomitant]
  4. ATACAND [Concomitant]
  5. BISOPROLOL FUMARATE [Concomitant]

REACTIONS (2)
  - BRONCHITIS [None]
  - CONSTIPATION [None]
